FAERS Safety Report 9300900 (Version 1)
Quarter: 2013Q2

REPORT INFORMATION
  Report Type: Spontaneous
  Country: IT (occurrence: IT)
  Receive Date: 20130521
  Receipt Date: 20130521
  Transmission Date: 20140414
  Serious: Yes (Other)
  Sender: FDA-Public Use
  Company Number: IT-ELI_LILLY_AND_COMPANY-IT201305003727

PATIENT
  Age: 79 Year
  Sex: Female

DRUGS (4)
  1. XERISTAR [Suspect]
     Dosage: 30 MG, QD
     Route: 048
     Dates: start: 20120310, end: 20130309
  2. SOLIAN [Concomitant]
     Dosage: 200 MG, QD
     Route: 048
     Dates: start: 20120310, end: 20130309
  3. MODURETIC [Concomitant]
     Dosage: 1 DF, UNKNOWN
  4. CARDIOASPIRIN [Concomitant]
     Dosage: 100 MG, UNKNOWN
     Route: 048

REACTIONS (2)
  - Presyncope [Not Recovered/Not Resolved]
  - Parkinsonism [Not Recovered/Not Resolved]
